FAERS Safety Report 11249052 (Version 1)
Quarter: 2015Q3

REPORT INFORMATION
  Report Type: Spontaneous
  Country: US (occurrence: US)
  Receive Date: 20150708
  Receipt Date: 20150708
  Transmission Date: 20151125
  Serious: No
  Sender: FDA-Public Use
  Company Number: US-ELI_LILLY_AND_COMPANY-US200801005723

PATIENT
  Age: 77 Year
  Sex: Female

DRUGS (7)
  1. FOLIC ACID. [Concomitant]
     Active Substance: FOLIC ACID
     Indication: PREMEDICATION
  2. ALIMTA [Suspect]
     Active Substance: PEMETREXED DISODIUM
     Indication: LUNG ADENOCARCINOMA
     Dosage: 500 MG, OTHER
     Route: 042
     Dates: start: 20080125
  3. VITAMIN B12 [Concomitant]
     Active Substance: CYANOCOBALAMIN
     Indication: PREMEDICATION
  4. MULTIVITAMIN [Concomitant]
     Active Substance: VITAMINS
  5. ASA [Concomitant]
     Active Substance: ASPIRIN
     Dosage: 80 MG, DAILY (1/D)
  6. MUCINEX [Concomitant]
     Active Substance: GUAIFENESIN
     Indication: RHINORRHOEA
     Dates: start: 2008
  7. PROCRIT [Concomitant]
     Active Substance: ERYTHROPOIETIN

REACTIONS (8)
  - Syncope [Not Recovered/Not Resolved]
  - Vomiting [Not Recovered/Not Resolved]
  - Retching [Not Recovered/Not Resolved]
  - Bone pain [Not Recovered/Not Resolved]
  - Dizziness [Not Recovered/Not Resolved]
  - Cough [Not Recovered/Not Resolved]
  - Feeling drunk [Not Recovered/Not Resolved]
  - Decreased appetite [Not Recovered/Not Resolved]

NARRATIVE: CASE EVENT DATE: 20080125
